FAERS Safety Report 4996525-0 (Version None)
Quarter: 2006Q2

REPORT INFORMATION
  Report Type: 
  Country: None (occurrence: None)
  Receive Date: 20060509
  Receipt Date: 20060426
  Transmission Date: 20061013
  Serious: Yes (Hospitalization)
  Sender: FDA-Public Use
  Company Number: FR-AVENTIS-200611595FR

PATIENT
  Age: 78 Year
  Sex: Male

DRUGS (10)
  1. DAONIL [Suspect]
     Indication: DIABETES MELLITUS NON-INSULIN-DEPENDENT
     Route: 048
     Dates: end: 20060221
  2. AVANDAMET [Suspect]
     Route: 048
     Dates: end: 20060221
  3. LOGIMAX [Concomitant]
  4. SECALIP [Concomitant]
  5. FLUOXETINE [Concomitant]
  6. COAPROVEL [Concomitant]
  7. KALEORID [Concomitant]
  8. ASASANTIN [Concomitant]
  9. SERESTA [Concomitant]
  10. LAROXYL [Concomitant]

REACTIONS (4)
  - DYSARTHRIA [None]
  - FALL [None]
  - HYPOGLYCAEMIA [None]
  - NERVOUS SYSTEM DISORDER [None]
